FAERS Safety Report 6815534 (Version 3)
Quarter: 2013Q4

REPORT INFORMATION
  Report Type: Spontaneous
  Country: US (occurrence: US)
  Receive Date: 20081119
  Receipt Date: 20131011
  Transmission Date: 20140711
  Serious: Yes (Hospitalization, Other)
  Sender: FDA-Public Use
  Company Number: US-BAYER-200838731NA

PATIENT
  Age: 40 Year
  Sex: Female
  Weight: 45.91 kg

DRUGS (5)
  1. YASMIN [Suspect]
     Dosage: 1 TABLET PO DAILY
     Route: 048
  2. YAZ [Suspect]
  3. OCELLA [Suspect]
  4. IBUPROFEN [Concomitant]
     Indication: PAIN
     Dosage: 800 MG, TID, PRN
  5. KEFLEX [Concomitant]
     Dosage: 500 MG, TID
     Dates: start: 20070606

REACTIONS (4)
  - Deep vein thrombosis [None]
  - Pulmonary embolism [None]
  - Thrombophlebitis superficial [None]
  - Injury [None]
